FAERS Safety Report 21956908 (Version 1)
Quarter: 2023Q1

REPORT INFORMATION
  Report Type: Spontaneous
  Country: CN (occurrence: CN)
  Receive Date: 20230206
  Receipt Date: 20230206
  Transmission Date: 20230418
  Serious: Yes (Hospitalization, Other)
  Sender: FDA-Public Use
  Company Number: CN-SANOFI-01467446

PATIENT
  Age: 72 Year
  Sex: Female

DRUGS (3)
  1. LANTUS SOLOSTAR [Suspect]
     Active Substance: INSULIN GLARGINE
     Indication: Diabetes mellitus
     Dosage: 15-16 , QD
     Route: 058
  2. LANTUS SOLOSTAR [Suspect]
     Active Substance: INSULIN GLARGINE
     Dosage: 20 IU, QD
     Route: 058
  3. METFORMIN [Concomitant]
     Active Substance: METFORMIN HYDROCHLORIDE
     Indication: Diabetes mellitus
     Dosage: 1 DF, QD
     Route: 048

REACTIONS (13)
  - Nephrolithiasis [Unknown]
  - Obstruction [Unknown]
  - Kidney infection [Unknown]
  - Sepsis [Unknown]
  - COVID-19 pneumonia [Unknown]
  - Pyrexia [Unknown]
  - Blood glucose increased [Unknown]
  - Blood pressure decreased [Recovered/Resolved]
  - Limb injury [Unknown]
  - Initial insomnia [Unknown]
  - Cough [Recovering/Resolving]
  - Road traffic accident [Unknown]
  - Nocturia [Unknown]

NARRATIVE: CASE EVENT DATE: 20190101
